FAERS Safety Report 4430763-0 (Version None)
Quarter: 2004Q3

REPORT INFORMATION
  Report Type: 
  Country: None (occurrence: None)
  Receive Date: 20040818
  Receipt Date: 20040727
  Transmission Date: 20050211
  Serious: Yes (Hospitalization)
  Sender: FDA-Public Use
  Company Number: MEDI-0002149

PATIENT
  Age: 48 Year
  Sex: Male

DRUGS (2)
  1. ETHYOL [Suspect]
     Indication: RADIOTHERAPY
     Dosage: INTRAVENOUS
     Route: 042
  2. RADIATION THERAPY [Concomitant]

REACTIONS (3)
  - DERMATITIS [None]
  - HYPERSENSITIVITY [None]
  - REACTION TO DRUG EXCIPIENT [None]
